FAERS Safety Report 5603234-3 (Version None)
Quarter: 2008Q1

REPORT INFORMATION
  Report Type: 
  Country: None (occurrence: None)
  Receive Date: 20080125
  Receipt Date: 20080113
  Transmission Date: 20080703
  Serious: Yes (Other)
  Sender: FDA-Public Use
  Company Number: US-PFIZER INC-2008005087

PATIENT
  Age: 43 Year
  Sex: Male
  Weight: 147.4 kg

DRUGS (2)
  1. CHANTIX [Suspect]
     Indication: SMOKING CESSATION THERAPY
  2. INSULIN [Concomitant]
     Indication: DIABETES MELLITUS

REACTIONS (7)
  - FLATULENCE [None]
  - GASTROINTESTINAL DISORDER [None]
  - HEAD INJURY [None]
  - IRRITABILITY [None]
  - LOSS OF CONSCIOUSNESS [None]
  - NAUSEA [None]
  - SEXUAL DYSFUNCTION [None]
